FAERS Safety Report 17100141 (Version 1)
Quarter: 2019Q4

REPORT INFORMATION
  Report Type: Spontaneous
  Country: FR (occurrence: FR)
  Receive Date: 20191202
  Receipt Date: 20191202
  Transmission Date: 20200122
  Serious: Yes (Other)
  Sender: FDA-Public Use
  Company Number: FR-MYLANLABS-2019M1115898

PATIENT
  Age: 22 Year
  Sex: Female

DRUGS (5)
  1. DAFALGAN [Suspect]
     Active Substance: ACETAMINOPHEN
     Indication: PRODUCT USED FOR UNKNOWN INDICATION
     Dosage: 6 GRAM
     Route: 048
     Dates: start: 20190612, end: 20190612
  2. ALPRAZOLAM. [Suspect]
     Active Substance: ALPRAZOLAM
     Indication: PRODUCT USED FOR UNKNOWN INDICATION
     Dosage: 45 COMPRIM?S DE 0.25 MG
     Route: 048
     Dates: start: 20190612, end: 20190612
  3. TERCIAN                            /00759301/ [Suspect]
     Active Substance: CYAMEMAZINE
     Indication: AGITATION
     Dosage: NON RENSEIGN?E
     Route: 048
     Dates: start: 20190613, end: 20190615
  4. SERTRALINE [Suspect]
     Active Substance: SERTRALINE HYDROCHLORIDE
     Indication: PRODUCT USED FOR UNKNOWN INDICATION
     Dosage: 50 DOSAGE FORM
     Route: 048
     Dates: start: 20190612, end: 20190612
  5. ALPRAZOLAM. [Suspect]
     Active Substance: ALPRAZOLAM
     Dosage: 45 COMPRIM?S DE 0.25 MG
     Route: 048
     Dates: start: 20190612, end: 20190612

REACTIONS (3)
  - Hypertransaminasaemia [Recovering/Resolving]
  - Hepatocellular injury [Recovering/Resolving]
  - Suicide attempt [Unknown]

NARRATIVE: CASE EVENT DATE: 20190614
